FAERS Safety Report 9563783 (Version 1)
Quarter: 2013Q3

REPORT INFORMATION
  Report Type: Spontaneous
  Country: US (occurrence: None)
  Receive Date: 20130926
  Receipt Date: 20130926
  Transmission Date: 20140515
  Serious: No
  Sender: FDA-Public Use
  Company Number: None

PATIENT
  Age: 61 Year
  Sex: Female
  Weight: 67.13 kg

DRUGS (3)
  1. FLUTICASONE PROPIONATE [Suspect]
     Dosage: 1X DAILY 2 PUFF PER NOSTIL
     Dates: start: 20130911, end: 20130913
  2. FLUTICASONE PROPIONATE [Suspect]
     Dosage: 1X DAILY 2 PUFF PER NOSTIL
     Dates: start: 20130911, end: 20130913
  3. FLUTICASONE PROPIONATE [Suspect]
     Dosage: 1X DAILY 2 PUFF PER NOSTIL
     Dates: start: 20130911, end: 20130913

REACTIONS (2)
  - Dizziness [None]
  - Nausea [None]
